FAERS Safety Report 6603595-2 (Version None)
Quarter: 2010Q1

REPORT INFORMATION
  Report Type: 
  Country: None (occurrence: None)
  Receive Date: 20100226
  Receipt Date: 20091202
  Transmission Date: 20100710
  Serious: No
  Sender: FDA-Public Use
  Company Number: A0816122A

PATIENT
  Age: 24 Year
  Sex: Female

DRUGS (2)
  1. VALTREX [Suspect]
     Indication: GENITAL HERPES
     Dosage: 500MG PER DAY
     Route: 048
  2. CELEXA [Concomitant]
     Dosage: 10MG PER DAY

REACTIONS (3)
  - COMPUTERISED TOMOGRAM HEAD [None]
  - HEADACHE [None]
  - SINUSITIS [None]
